FAERS Safety Report 24345438 (Version 1)
Quarter: 2024Q3

REPORT INFORMATION
  Report Type: Spontaneous
  Country: US (occurrence: None)
  Receive Date: 20240920
  Receipt Date: 20240920
  Transmission Date: 20241016
  Serious: Yes (Other)
  Sender: Public
  Company Number: None

PATIENT
  Age: 50 Year
  Sex: Male
  Weight: 93.9 kg

DRUGS (1)
  1. VANCOMYCIN [Suspect]
     Active Substance: VANCOMYCIN
     Indication: Pyrexia
     Dosage: OTHER FREQUENCY : ONCE;?
     Route: 041
     Dates: start: 20240919, end: 20240919

REACTIONS (5)
  - Dialysis [None]
  - Pruritus [None]
  - Discomfort [None]
  - Feeling hot [None]
  - Drug hypersensitivity [None]

NARRATIVE: CASE EVENT DATE: 20240919
